FAERS Safety Report 5390811-0 (Version None)
Quarter: 2007Q3

REPORT INFORMATION
  Report Type: 
  Country: None (occurrence: None)
  Receive Date: 20070716
  Receipt Date: 20070629
  Transmission Date: 20080115
  Serious: Yes (Other)
  Sender: FDA-Public Use
  Company Number: OMPQ-NO-0707S-0805

PATIENT
  Age: 76 Year
  Sex: Male

DRUGS (2)
  1. OMNIPAQUE 140 [Suspect]
     Indication: HEADACHE
     Dosage: 12 ML, SINGLE DOSE, I.T.
     Route: 037
     Dates: start: 20070604, end: 20070604
  2. ACETAMINOPHEN [Concomitant]

REACTIONS (3)
  - APHASIA [None]
  - POST PROCEDURAL COMPLICATION [None]
  - UNRESPONSIVE TO STIMULI [None]
